FAERS Safety Report 18539209 (Version 1)
Quarter: 2020Q4

REPORT INFORMATION
  Report Type: Spontaneous
  Country: US (occurrence: US)
  Receive Date: 20201124
  Receipt Date: 20201124
  Transmission Date: 20210114
  Serious: Yes (Other)
  Sender: FDA-Public Use
  Company Number: NVSC2020US312474

PATIENT
  Age: 19 Month
  Sex: Female

DRUGS (2)
  1. TACROLIMUS. [Suspect]
     Active Substance: TACROLIMUS
     Indication: MULTIVISCERAL TRANSPLANTATION
     Dosage: MAINTENANCE THERAPY
     Route: 065
  2. BASILIXIMAB [Concomitant]
     Active Substance: BASILIXIMAB
     Indication: MULTIVISCERAL TRANSPLANTATION
     Dosage: UNK, INDUCTION THERAPY
     Route: 065

REACTIONS (5)
  - Haemolytic anaemia [Unknown]
  - Graft versus host disease [Unknown]
  - Transplant rejection [Unknown]
  - Post transplant lymphoproliferative disorder [Unknown]
  - Product use in unapproved indication [Unknown]
